FAERS Safety Report 9693465 (Version 2)
Quarter: 2013Q4

REPORT INFORMATION
  Report Type: Spontaneous
  Country: EC (occurrence: EC)
  Receive Date: 20131118
  Receipt Date: 20131127
  Transmission Date: 20140711
  Serious: Yes (Hospitalization, Other)
  Sender: FDA-Public Use
  Company Number: EC-PFIZER INC-2013325308

PATIENT
  Age: 75 Year
  Sex: Male

DRUGS (4)
  1. LYRICA [Suspect]
     Indication: SPINAL PAIN
     Dosage: 150 MG, 1X/DAY
     Route: 048
     Dates: start: 2011
  2. LYRICA [Suspect]
     Indication: MYALGIA
  3. INSULIN [Concomitant]
     Indication: DIABETES MELLITUS
     Dosage: UNK
     Route: 058
  4. LOSARTAN [Concomitant]
     Indication: HYPERTENSION
     Dosage: UNK
     Route: 048

REACTIONS (2)
  - Off label use [Unknown]
  - Cardiac disorder [Recovered/Resolved]
